FAERS Safety Report 25254858 (Version 1)
Quarter: 2025Q2

REPORT INFORMATION
  Report Type: Spontaneous
  Country: ES (occurrence: ES)
  Receive Date: 20250430
  Receipt Date: 20250430
  Transmission Date: 20250717
  Serious: Yes (Hospitalization)
  Sender: MYLAN
  Company Number: ES-MYLANLABS-2025M1036958

PATIENT
  Age: 58 Year
  Sex: Female

DRUGS (48)
  1. GABAPENTIN [Suspect]
     Active Substance: GABAPENTIN
     Indication: Paroxysmal extreme pain disorder
     Dosage: 900 MILLIGRAM, TID
  2. GABAPENTIN [Suspect]
     Active Substance: GABAPENTIN
     Dosage: 900 MILLIGRAM, TID
     Route: 065
  3. GABAPENTIN [Suspect]
     Active Substance: GABAPENTIN
     Dosage: 900 MILLIGRAM, TID
     Route: 065
  4. GABAPENTIN [Suspect]
     Active Substance: GABAPENTIN
     Dosage: 900 MILLIGRAM, TID
  5. OXCARBAZEPINE [Suspect]
     Active Substance: OXCARBAZEPINE
     Indication: Trigeminal neuralgia
     Dosage: 300 MILLIGRAM, BID
     Dates: start: 2012
  6. OXCARBAZEPINE [Suspect]
     Active Substance: OXCARBAZEPINE
     Dosage: 300 MILLIGRAM, BID
     Route: 065
     Dates: start: 2012
  7. OXCARBAZEPINE [Suspect]
     Active Substance: OXCARBAZEPINE
     Dosage: 300 MILLIGRAM, BID
     Route: 065
     Dates: start: 2012
  8. OXCARBAZEPINE [Suspect]
     Active Substance: OXCARBAZEPINE
     Dosage: 300 MILLIGRAM, BID
     Dates: start: 2012
  9. PREGABALIN [Suspect]
     Active Substance: PREGABALIN
     Indication: Paroxysmal extreme pain disorder
     Dosage: 300 MILLIGRAM, BID
  10. PREGABALIN [Suspect]
     Active Substance: PREGABALIN
     Indication: Trigeminal neuralgia
     Dosage: 300 MILLIGRAM, BID
     Route: 065
  11. PREGABALIN [Suspect]
     Active Substance: PREGABALIN
     Dosage: 300 MILLIGRAM, BID
     Route: 065
  12. PREGABALIN [Suspect]
     Active Substance: PREGABALIN
     Dosage: 300 MILLIGRAM, BID
  13. CARBAMAZEPINE [Suspect]
     Active Substance: CARBAMAZEPINE
     Indication: Paroxysmal extreme pain disorder
     Dosage: 200 MILLIGRAM, TID
  14. CARBAMAZEPINE [Suspect]
     Active Substance: CARBAMAZEPINE
     Indication: Trigeminal neuralgia
     Dosage: 200 MILLIGRAM, TID
     Route: 065
  15. CARBAMAZEPINE [Suspect]
     Active Substance: CARBAMAZEPINE
     Dosage: 200 MILLIGRAM, TID
     Route: 065
  16. CARBAMAZEPINE [Suspect]
     Active Substance: CARBAMAZEPINE
     Dosage: 200 MILLIGRAM, TID
  17. BOTULINUM TOXIN NOS [Suspect]
     Active Substance: BOTULINUM TOXIN NOS
     Indication: Trigeminal neuralgia
  18. BOTULINUM TOXIN NOS [Suspect]
     Active Substance: BOTULINUM TOXIN NOS
     Route: 065
  19. BOTULINUM TOXIN NOS [Suspect]
     Active Substance: BOTULINUM TOXIN NOS
     Route: 065
  20. BOTULINUM TOXIN NOS [Suspect]
     Active Substance: BOTULINUM TOXIN NOS
  21. CLONAZEPAM [Suspect]
     Active Substance: CLONAZEPAM
     Indication: Trigeminal neuralgia
  22. CLONAZEPAM [Suspect]
     Active Substance: CLONAZEPAM
     Route: 065
  23. CLONAZEPAM [Suspect]
     Active Substance: CLONAZEPAM
     Route: 065
  24. CLONAZEPAM [Suspect]
     Active Substance: CLONAZEPAM
  25. LACOSAMIDE [Suspect]
     Active Substance: LACOSAMIDE
     Indication: Trigeminal neuralgia
     Dosage: 100 MILLIGRAM, BID
     Dates: start: 2015
  26. LACOSAMIDE [Suspect]
     Active Substance: LACOSAMIDE
     Dosage: 100 MILLIGRAM, BID
     Route: 065
     Dates: start: 2015
  27. LACOSAMIDE [Suspect]
     Active Substance: LACOSAMIDE
     Dosage: 100 MILLIGRAM, BID
     Route: 065
     Dates: start: 2015
  28. LACOSAMIDE [Suspect]
     Active Substance: LACOSAMIDE
     Dosage: 100 MILLIGRAM, BID
     Dates: start: 2015
  29. DESVENLAFAXINE [Suspect]
     Active Substance: DESVENLAFAXINE
     Indication: Trigeminal neuralgia
     Dosage: 50 MILLIGRAM, QD
     Dates: start: 2017
  30. DESVENLAFAXINE [Suspect]
     Active Substance: DESVENLAFAXINE
     Dosage: 50 MILLIGRAM, QD
     Route: 065
     Dates: start: 2017
  31. DESVENLAFAXINE [Suspect]
     Active Substance: DESVENLAFAXINE
     Dosage: 50 MILLIGRAM, QD
     Route: 065
     Dates: start: 2017
  32. DESVENLAFAXINE [Suspect]
     Active Substance: DESVENLAFAXINE
     Dosage: 50 MILLIGRAM, QD
     Dates: start: 2017
  33. LIDOCAINE [Concomitant]
     Active Substance: LIDOCAINE
     Indication: Paroxysmal extreme pain disorder
  34. LIDOCAINE [Concomitant]
     Active Substance: LIDOCAINE
     Route: 065
  35. LIDOCAINE [Concomitant]
     Active Substance: LIDOCAINE
     Route: 065
  36. LIDOCAINE [Concomitant]
     Active Substance: LIDOCAINE
  37. FENTANYL CITRATE [Concomitant]
     Active Substance: FENTANYL CITRATE
     Indication: Paroxysmal extreme pain disorder
  38. FENTANYL CITRATE [Concomitant]
     Active Substance: FENTANYL CITRATE
     Route: 048
  39. FENTANYL CITRATE [Concomitant]
     Active Substance: FENTANYL CITRATE
     Route: 048
  40. FENTANYL CITRATE [Concomitant]
     Active Substance: FENTANYL CITRATE
  41. FENTANYL CITRATE [Concomitant]
     Active Substance: FENTANYL CITRATE
     Indication: Paroxysmal extreme pain disorder
  42. FENTANYL CITRATE [Concomitant]
     Active Substance: FENTANYL CITRATE
     Route: 065
  43. FENTANYL CITRATE [Concomitant]
     Active Substance: FENTANYL CITRATE
     Route: 065
  44. FENTANYL CITRATE [Concomitant]
     Active Substance: FENTANYL CITRATE
  45. TAPENTADOL [Concomitant]
     Active Substance: TAPENTADOL
     Indication: Trigeminal neuralgia
     Dosage: 50 MILLIGRAM, BID
     Dates: start: 2014
  46. TAPENTADOL [Concomitant]
     Active Substance: TAPENTADOL
     Dosage: 50 MILLIGRAM, BID
     Route: 065
     Dates: start: 2014
  47. TAPENTADOL [Concomitant]
     Active Substance: TAPENTADOL
     Dosage: 50 MILLIGRAM, BID
     Route: 065
     Dates: start: 2014
  48. TAPENTADOL [Concomitant]
     Active Substance: TAPENTADOL
     Dosage: 50 MILLIGRAM, BID
     Dates: start: 2014

REACTIONS (1)
  - Drug ineffective [Unknown]
